FAERS Safety Report 4690266-5 (Version None)
Quarter: 2005Q2

REPORT INFORMATION
  Report Type: 
  Country: None (occurrence: None)
  Receive Date: 20050615
  Receipt Date: 20050512
  Transmission Date: 20051028
  Serious: Yes (Life-Threatening, Hospitalization, Other)
  Sender: FDA-Public Use
  Company Number: CA-GLAXOSMITHKLINE-A0559020A

PATIENT
  Age: 83 Year
  Sex: Male
  Weight: 68.2 kg

DRUGS (3)
  1. CLAVULIN [Suspect]
     Indication: DRUG USE FOR UNKNOWN INDICATION
     Dosage: 750MG TWICE PER DAY
     Route: 048
     Dates: end: 20050501
  2. VITAMINS [Concomitant]
  3. URSODIOL [Concomitant]

REACTIONS (4)
  - EPISTAXIS [None]
  - HAEMATEMESIS [None]
  - HAEMATOMA [None]
  - THROMBOCYTOPENIA [None]
